FAERS Safety Report 23326084 (Version 1)
Quarter: 2023Q4

REPORT INFORMATION
  Report Type: Report from Study
  Country: BR (occurrence: BR)
  Receive Date: 20231221
  Receipt Date: 20231221
  Transmission Date: 20240110
  Serious: Yes (Other)
  Sender: FDA-Public Use
  Company Number: BR-002147023-NVSC2023BR267033

PATIENT
  Age: 71 Year
  Sex: Female

DRUGS (1)
  1. KISQALI [Suspect]
     Active Substance: RIBOCICLIB
     Indication: Breast cancer
     Dosage: UNK
     Route: 065

REACTIONS (9)
  - Immunodeficiency [Unknown]
  - Herpes zoster oticus [Recovering/Resolving]
  - Metastasis [Unknown]
  - Metastases to bone [Unknown]
  - Metastases to liver [Unknown]
  - Dizziness [Not Recovered/Not Resolved]
  - Ear pain [Unknown]
  - Otorrhoea [Recovering/Resolving]
  - Blister [Recovering/Resolving]

NARRATIVE: CASE EVENT DATE: 20231207
